FAERS Safety Report 9425869 (Version 1)
Quarter: 2013Q3

REPORT INFORMATION
  Report Type: Spontaneous
  Country: FR (occurrence: FR)
  Receive Date: 20130729
  Receipt Date: 20130729
  Transmission Date: 20140515
  Serious: Yes (Hospitalization)
  Sender: FDA-Public Use
  Company Number: FR-B.I. PHARMACEUTICALS,INC./RIDGEFIELD-2013-FF-01921FF

PATIENT
  Age: 74 Year
  Sex: Female

DRUGS (5)
  1. PRADAXA [Suspect]
     Indication: THROMBOSIS PROPHYLAXIS
     Dosage: 220 MG
     Route: 048
     Dates: start: 20130521, end: 20130524
  2. STABLON [Concomitant]
     Route: 048
  3. LEXOMIL ROCHE [Concomitant]
     Route: 048
  4. TEMESTA [Concomitant]
     Dosage: 2.5 MG
     Route: 048
  5. IXPRIM [Concomitant]
     Dosage: 1 DF WHEN NEEDED
     Route: 048

REACTIONS (1)
  - Myocardial ischaemia [Recovered/Resolved]
